FAERS Safety Report 9903792 (Version 1)
Quarter: 2014Q1

REPORT INFORMATION
  Report Type: Report from Study
  Country: DE (occurrence: DE)
  Receive Date: 20140218
  Receipt Date: 20140218
  Transmission Date: 20141002
  Serious: Yes (Hospitalization)
  Sender: FDA-Public Use
  Company Number: DE-ROCHE-1347869

PATIENT
  Age: 72 Year
  Sex: Female

DRUGS (6)
  1. TOCILIZUMAB [Suspect]
     Indication: PRODUCT USED FOR UNKNOWN INDICATION
     Route: 065
     Dates: start: 201203
  2. TOCILIZUMAB [Suspect]
     Route: 065
     Dates: start: 20100511
  3. ABATACEPT [Concomitant]
     Route: 065
     Dates: start: 201011, end: 201202
  4. METHOTREXATE [Concomitant]
     Route: 065
     Dates: start: 20100511
  5. METHOTREXATE [Concomitant]
     Route: 065
     Dates: start: 20101111
  6. INFLIXIMAB [Concomitant]
     Route: 065
     Dates: start: 201002, end: 201007

REACTIONS (1)
  - Arthritis [Unknown]
